FAERS Safety Report 10386554 (Version 1)
Quarter: 2014Q3

REPORT INFORMATION
  Report Type: Spontaneous
  Country: US (occurrence: None)
  Receive Date: 20140814
  Receipt Date: 20140814
  Transmission Date: 20150326
  Serious: Yes (Hospitalization)
  Sender: FDA-Public Use
  Company Number: None

PATIENT
  Age: 84 Year
  Sex: Male

DRUGS (8)
  1. NAPROSYN [Suspect]
     Active Substance: NAPROXEN
     Indication: PAIN IN JAW
     Dosage: 1 PILL ORAL
     Route: 048
     Dates: start: 20140808, end: 20140808
  2. TYLENOL(ACETAMINOPHEN/CODEINE) [Concomitant]
  3. VITAMIN C [Concomitant]
     Active Substance: ASCORBIC ACID
  4. STOOL SOFTNER [Concomitant]
  5. TYLENOL ARTHRITIS PAIN [Concomitant]
     Active Substance: ACETAMINOPHEN
  6. FISH OIL [Concomitant]
     Active Substance: FISH OIL
  7. NATURE MADE VITAMIN E [Concomitant]
  8. COLCRYS [Concomitant]
     Active Substance: COLCHICINE

REACTIONS (6)
  - Epigastric discomfort [None]
  - Upper gastrointestinal haemorrhage [None]
  - Abdominal pain upper [None]
  - Vomiting [None]
  - Dizziness [None]
  - Dizziness postural [None]

NARRATIVE: CASE EVENT DATE: 20140808
